FAERS Safety Report 16758662 (Version 10)
Quarter: 2020Q2

REPORT INFORMATION
  Report Type: Report from Study
  Country: FR (occurrence: FR)
  Receive Date: 20190830
  Receipt Date: 20200624
  Transmission Date: 20200713
  Serious: Yes (Life-Threatening, Hospitalization)
  Sender: FDA-Public Use
  Company Number: FR-ROCHE-2387623

PATIENT
  Age: 32 Year
  Sex: Female

DRUGS (5)
  1. OPTIMIZETTE [Concomitant]
     Active Substance: DESOGESTREL
     Indication: PROPHYLAXIS
     Route: 048
  2. TRAMADOL. [Concomitant]
     Active Substance: TRAMADOL
     Indication: NEURALGIA
     Route: 048
     Dates: start: 20190722, end: 20190805
  3. OCRELIZUMAB. [Suspect]
     Active Substance: OCRELIZUMAB
     Dosage: AN INITIAL DOSE OF TWO 300 MG INFUSIONS OF OCRELIZUMAB EACH SEPARATED BY 14 DAYS FOLLOWED BY ONE SIN
     Route: 042
  4. LYRICA [Concomitant]
     Active Substance: PREGABALIN
     Indication: NEURALGIA
     Route: 065
     Dates: start: 20190805, end: 20190807
  5. OCRELIZUMAB. [Suspect]
     Active Substance: OCRELIZUMAB
     Indication: RELAPSING MULTIPLE SCLEROSIS
     Dosage: AN INITIAL DOSE OF TWO 300 MG INFUSIONS OF OCRELIZUMAB EACH SEPARATED BY 14 DAYS FOLLOWED BY ONE SIN
     Route: 042
     Dates: start: 20190417

REACTIONS (2)
  - Neutropenia [Recovered/Resolved]
  - Febrile neutropenia [Recovered/Resolved]

NARRATIVE: CASE EVENT DATE: 20190807
